FAERS Safety Report 4721339-6 (Version None)
Quarter: 2005Q3

REPORT INFORMATION
  Report Type: 
  Country: None (occurrence: None)
  Receive Date: 20050721
  Receipt Date: 20040701
  Transmission Date: 20060218
  Serious: No
  Sender: FDA-Public Use
  Company Number: US-BRISTOL-MYERS SQUIBB COMPANY-12630109

PATIENT
  Age: 86 Year
  Sex: Male
  Weight: 82 kg

DRUGS (8)
  1. COUMADIN [Suspect]
     Indication: ATRIAL FIBRILLATION
     Dosage: DOSAGE: 1/2 OF A 2.5MG TABLET FOR 6 DAYS AND 2.5MG FOR 1 DAY
     Route: 048
  2. TYLENOL [Suspect]
     Dosage: DOSAGE: 3-4 TABLETS DAILY
     Route: 048
  3. TOPROL-XL [Concomitant]
  4. HYTRIN [Concomitant]
  5. PRAVACHOL [Concomitant]
  6. PRILOSEC [Concomitant]
  7. OCUVITE [Concomitant]
  8. HYDROCHLOROTHIAZIDE [Concomitant]

REACTIONS (1)
  - INTERNATIONAL NORMALISED RATIO INCREASED [None]
